FAERS Safety Report 25657812 (Version 2)
Quarter: 2025Q4

REPORT INFORMATION
  Report Type: Spontaneous
  Country: EU (occurrence: EU)
  Receive Date: 20250808
  Receipt Date: 20251006
  Transmission Date: 20260117
  Serious: Yes (Other)
  Sender: EMERGENT BIOSOLUTIONS
  Company Number: EU-Emergent Biosolutions-25000110

PATIENT
  Age: 0 Year
  Sex: Male
  Weight: 8.7 kg

DRUGS (1)
  1. BAT [Suspect]
     Active Substance: EQUINE BOTULINUM NEUROTOXIN A/B/C/D/E/F/G IMMUNE FAB2
     Indication: Botulism
     Dosage: 2.5 MILLILITER
     Route: 042
     Dates: start: 20250728, end: 20250728

REACTIONS (1)
  - Therapeutic product effect delayed [Unknown]

NARRATIVE: CASE EVENT DATE: 20250730
